FAERS Safety Report 9153066 (Version 1)
Quarter: 2013Q1

REPORT INFORMATION
  Report Type: Spontaneous
  Country: CN (occurrence: CN)
  Receive Date: 20130310
  Receipt Date: 20130310
  Transmission Date: 20140127
  Serious: Yes (Other)
  Sender: FDA-Public Use
  Company Number: CN-BRISTOL-MYERS SQUIBB COMPANY-17435058

PATIENT
  Age: 30 Year
  Sex: Male

DRUGS (1)
  1. BARACLUDE [Suspect]
     Dosage: INTERRUPTED ON NOV TO DEC.2012
     Dates: start: 201202

REACTIONS (2)
  - Viral load increased [Unknown]
  - Treatment noncompliance [Unknown]
